FAERS Safety Report 4999492-9 (Version None)
Quarter: 2006Q2

REPORT INFORMATION
  Report Type: 
  Country: None (occurrence: None)
  Receive Date: 20060509
  Receipt Date: 20060501
  Transmission Date: 20061013
  Serious: Yes (Death)
  Sender: FDA-Public Use
  Company Number: USA-2006-0023277

PATIENT
  Age: 49 Year
  Sex: Male

DRUGS (13)
  1. MS CONTIN [Suspect]
     Indication: PAIN
     Dosage: SEE IMAGE
     Dates: start: 20051223
  2. MS CONTIN [Suspect]
     Indication: PAIN
     Dosage: SEE IMAGE
     Dates: start: 20051229
  3. ALBUTEROL [Concomitant]
  4. ATROVENT [Concomitant]
  5. ZOLOFT [Concomitant]
  6. SEROQUEL [Concomitant]
  7. EFFEXOR [Concomitant]
  8. POVIDONE IODINE TOPICAL SOLUTION (DEVICE OTHER, PHOSPHATIDYL CHOLINE, [Concomitant]
  9. ADVAIR DISKUS (SALMETEROL XINAFOATE, FLUTICASONE PROPIONATE) [Concomitant]
  10. ASPIRIN [Concomitant]
  11. DEPAKOTE-SLOW RELEASE (VALPROATE SEMISODIUM) [Concomitant]
  12. ATIVAN [Concomitant]
  13. INFLUENZA VIRUS VACCINE (INFLUENZA VIRUS VACCINE POLYVALENT) [Concomitant]

REACTIONS (1)
  - INADEQUATE ANALGESIA [None]
